FAERS Safety Report 8848448 (Version 3)
Quarter: 2013Q2

REPORT INFORMATION
  Report Type: Spontaneous
  Country: US (occurrence: US)
  Receive Date: 20121019
  Receipt Date: 20130423
  Transmission Date: 20140414
  Serious: No
  Sender: FDA-Public Use
  Company Number: US-BIOGENIDEC-2012BI044215

PATIENT
  Sex: Female

DRUGS (1)
  1. TYSABRI [Suspect]
     Indication: MULTIPLE SCLEROSIS
     Route: 042
     Dates: start: 20120504

REACTIONS (7)
  - Depression [Unknown]
  - Drug ineffective [Recovered/Resolved]
  - Fatigue [Unknown]
  - Asthenia [Unknown]
  - Gait disturbance [Recovered/Resolved with Sequelae]
  - Balance disorder [Recovered/Resolved with Sequelae]
  - Dysstasia [Recovered/Resolved with Sequelae]
